FAERS Safety Report 12658506 (Version 4)
Quarter: 2017Q1

REPORT INFORMATION
  Report Type: Report from Study
  Country: MX (occurrence: MX)
  Receive Date: 20160817
  Receipt Date: 20170131
  Transmission Date: 20170428
  Serious: Yes (Death, Hospitalization, Disabling, Other)
  Sender: FDA-Public Use
  Company Number: PHHY2014MX163013

PATIENT
  Age: 64 Year
  Sex: Male
  Weight: 52 kg

DRUGS (12)
  1. ATACAND [Concomitant]
     Active Substance: CANDESARTAN CILEXETIL
     Indication: HYPERTENSION
     Dosage: 2 MG, UNK (MONDAY,WEDNESDAY AND FRIDAY 8 YEARS AGO)
     Route: 048
  2. EXELON PATCH [Suspect]
     Active Substance: RIVASTIGMINE
     Dosage: 2 DF (2 PATCHES OF 5 CM2), QD
     Route: 062
     Dates: start: 20141204
  3. EXELON PATCH [Suspect]
     Active Substance: RIVASTIGMINE
     Dosage: UNK
     Route: 062
     Dates: end: 201601
  4. EXELON PATCH [Suspect]
     Active Substance: RIVASTIGMINE
     Dosage: 4.6 MG PATCH 5 (CM^2), QD
     Route: 062
  5. AKATINOL [Concomitant]
     Indication: CEREBRAL DISORDER
     Dosage: 20 MG, QD
     Route: 048
     Dates: start: 2012
  6. EXELON PATCH [Suspect]
     Active Substance: RIVASTIGMINE
     Indication: DEMENTIA ALZHEIMER^S TYPE
     Dosage: 4.6 MG, QD PATCH 5 (CM2)
     Route: 062
     Dates: start: 201210
  7. EXELON PATCH [Suspect]
     Active Substance: RIVASTIGMINE
     Indication: CEREBROVASCULAR ACCIDENT
     Dosage: 9.5 MG, QD PATCH 10 (CM2)
     Route: 062
     Dates: start: 2012
  8. VITAMIN E [Concomitant]
     Active Substance: .ALPHA.-TOCOPHEROL
     Indication: CEREBRAL DISORDER
     Dosage: 400 MG, QD (IN THE MORNING)
     Route: 065
     Dates: start: 20141204
  9. EXELON PATCH [Suspect]
     Active Substance: RIVASTIGMINE
     Dosage: 4.6 MG, QD PATCH 5 (CM2),
     Route: 062
     Dates: end: 201505
  10. EXELON PATCH [Suspect]
     Active Substance: RIVASTIGMINE
     Dosage: UNK
     Route: 062
     Dates: start: 201608
  11. AKATINOL [Concomitant]
     Indication: SENILE DEMENTIA
     Dosage: 10 MG, QD
     Route: 065
  12. BENEXAFRINE [Concomitant]
     Indication: PRODUCT USED FOR UNKNOWN INDICATION
     Dosage: 5 MG, QHS
     Route: 065

REACTIONS (41)
  - Pain in extremity [Not Recovered/Not Resolved]
  - Irritability [Not Recovered/Not Resolved]
  - Stubbornness [Unknown]
  - Weight decreased [Not Recovered/Not Resolved]
  - Blood pressure increased [Recovered/Resolved]
  - Tooth loss [Unknown]
  - Product adhesion issue [Unknown]
  - Memory impairment [Not Recovered/Not Resolved]
  - Musculoskeletal chest pain [Not Recovered/Not Resolved]
  - Peripheral swelling [Not Recovered/Not Resolved]
  - Muscular weakness [Not Recovered/Not Resolved]
  - Insomnia [Not Recovered/Not Resolved]
  - Joint swelling [Recovered/Resolved]
  - Fall [Recovered/Resolved]
  - Somnolence [Not Recovered/Not Resolved]
  - Drug administration error [Unknown]
  - Death [Fatal]
  - Productive cough [Recovered/Resolved]
  - Middle insomnia [Not Recovered/Not Resolved]
  - Drug prescribing error [Unknown]
  - Pneumonia [Recovered/Resolved]
  - Abasia [Not Recovered/Not Resolved]
  - General physical health deterioration [Not Recovered/Not Resolved]
  - Skin haemorrhage [Not Recovered/Not Resolved]
  - Drug ineffective [Unknown]
  - Sputum retention [Recovered/Resolved]
  - Dementia Alzheimer^s type [Unknown]
  - Clumsiness [Not Recovered/Not Resolved]
  - Confusional state [Not Recovered/Not Resolved]
  - Malaise [Unknown]
  - Incoherent [Not Recovered/Not Resolved]
  - Product use issue [Not Recovered/Not Resolved]
  - Aggression [Not Recovered/Not Resolved]
  - Sedation [Not Recovered/Not Resolved]
  - Speech disorder [Unknown]
  - Pharyngitis [Unknown]
  - Hyperhidrosis [Unknown]
  - Decreased interest [Unknown]
  - Oral fungal infection [Not Recovered/Not Resolved]
  - Body temperature increased [Recovered/Resolved]
  - Mobility decreased [Unknown]

NARRATIVE: CASE EVENT DATE: 201210
